FAERS Safety Report 25791838 (Version 1)
Quarter: 2025Q3

REPORT INFORMATION
  Report Type: Spontaneous
  Country: EG (occurrence: EG)
  Receive Date: 20250911
  Receipt Date: 20250911
  Transmission Date: 20251021
  Serious: Yes (Other)
  Sender: NOVARTIS
  Company Number: EG-002147023-NVSC2025EG138132

PATIENT
  Sex: Male

DRUGS (1)
  1. COSENTYX [Suspect]
     Active Substance: SECUKINUMAB
     Indication: Psoriasis
     Route: 065

REACTIONS (6)
  - Urinary retention [Unknown]
  - Nail psoriasis [Unknown]
  - Psoriasis [Unknown]
  - Oedema [Unknown]
  - Illness [Unknown]
  - Condition aggravated [Unknown]
